FAERS Safety Report 24443479 (Version 1)
Quarter: 2024Q4

REPORT INFORMATION
  Report Type: Spontaneous
  Country: DE (occurrence: DE)
  Receive Date: 20241016
  Receipt Date: 20241016
  Transmission Date: 20250114
  Serious: Yes (Congenital Anomaly)
  Sender: MIRUM PHARMACEUTICALS
  Company Number: DE-MIRUM PHARMACEUTICALS, INC.-DE-MIR-24-00889

PATIENT

DRUGS (1)
  1. MARALIXIBAT [Suspect]
     Active Substance: MARALIXIBAT
     Indication: Cholestasis of pregnancy
     Dosage: DO NOT KNOW THE EXACT STARTING DATE - MRX WAS DELIVERED LAST WEEK
     Route: 065
     Dates: start: 20240704

REACTIONS (2)
  - Congenital anomaly [Unknown]
  - Foetal exposure during pregnancy [Unknown]

NARRATIVE: CASE EVENT DATE: 20240701
